FAERS Safety Report 7205087-9 (Version None)
Quarter: 2010Q4

REPORT INFORMATION
  Report Type: 
  Country: None (occurrence: None)
  Receive Date: 20101230
  Receipt Date: 20101229
  Transmission Date: 20110411
  Serious: Yes (Hospitalization, Disabling, Other)
  Sender: FDA-Public Use
  Company Number: US-MERCK-0808USA05314

PATIENT
  Age: 53 Year
  Sex: Female
  Weight: 53 kg

DRUGS (2)
  1. FOSAMAX [Suspect]
     Indication: OSTEOPOROSIS
     Route: 048
     Dates: start: 19961021, end: 20010730
  2. FOSAMAX [Suspect]
     Route: 048
     Dates: start: 20010730, end: 20080705

REACTIONS (57)
  - ARTHRALGIA [None]
  - BONE DISORDER [None]
  - BONE FORMATION DECREASED [None]
  - BONE PAIN [None]
  - BREAST DISORDER [None]
  - CARDIAC MURMUR [None]
  - CAROTID ARTERY STENOSIS [None]
  - CAROTID BRUIT [None]
  - CATARACT CORTICAL [None]
  - DEAFNESS [None]
  - DEVICE ISSUE [None]
  - DRUG HYPERSENSITIVITY [None]
  - DYSPHAGIA [None]
  - EAR DISORDER [None]
  - FATIGUE [None]
  - FEMUR FRACTURE [None]
  - FOOT FRACTURE [None]
  - GAIT DISTURBANCE [None]
  - HEADACHE [None]
  - HIP FRACTURE [None]
  - INFECTED CYST [None]
  - INNER EAR DISORDER [None]
  - INTERVERTEBRAL DISC DEGENERATION [None]
  - INTERVERTEBRAL DISC PROTRUSION [None]
  - JOINT INJURY [None]
  - KYPHOSIS [None]
  - LIGAMENT SPRAIN [None]
  - LIMB INJURY [None]
  - LORDOSIS [None]
  - LOW TURNOVER OSTEOPATHY [None]
  - MENISCAL DEGENERATION [None]
  - MITRAL VALVE PROLAPSE [None]
  - NECK PAIN [None]
  - ORAL DISORDER [None]
  - OSTEOARTHRITIS [None]
  - OSTEOPOROSIS [None]
  - OTITIS MEDIA [None]
  - PAIN IN EXTREMITY [None]
  - PATELLOFEMORAL PAIN SYNDROME [None]
  - PERIODONTAL DISEASE [None]
  - POSTMENOPAUSAL HAEMORRHAGE [None]
  - PYELONEPHRITIS [None]
  - RETINOPATHY [None]
  - SEBORRHOEIC KERATOSIS [None]
  - STRESS FRACTURE [None]
  - TINNITUS [None]
  - TONSILLAR DISORDER [None]
  - TYMPANIC MEMBRANE PERFORATION [None]
  - URINARY TRACT INFECTION [None]
  - URINARY TRACT INFECTION BACTERIAL [None]
  - UTERINE ENLARGEMENT [None]
  - VAGINAL HAEMORRHAGE [None]
  - VAGINAL INFECTION [None]
  - VARICOSE VEIN [None]
  - VITREOUS DEGENERATION [None]
  - VITREOUS FLOATERS [None]
  - WOLFF-PARKINSON-WHITE SYNDROME [None]
